FAERS Safety Report 16190114 (Version 3)
Quarter: 2019Q3

REPORT INFORMATION
  Report Type: Report from Study
  Country: GB (occurrence: GB)
  Receive Date: 20190412
  Receipt Date: 20190801
  Transmission Date: 20191004
  Serious: Yes (Hospitalization, Other)
  Sender: FDA-Public Use
  Company Number: PHHY2018GB112354

PATIENT
  Sex: Male

DRUGS (6)
  1. DOXAZOSIN [Concomitant]
     Active Substance: DOXAZOSIN MESYLATE
     Indication: PRODUCT USED FOR UNKNOWN INDICATION
     Dosage: 2 MG, UNK
     Route: 065
  2. DOXAZOSIN [Concomitant]
     Active Substance: DOXAZOSIN MESYLATE
     Dosage: 4 MG, UNK
     Route: 065
  3. EPOTIN [Concomitant]
     Indication: RENAL DISORDER
     Dosage: UNK UNK, Q2W
     Route: 065
  4. SANDOSTATIN LAR DEPOT [Suspect]
     Active Substance: OCTREOTIDE ACETATE
     Indication: NEUROENDOCRINE TUMOUR
     Dosage: 30 MG, QMO (EVERY 4 WEEKS)
     Route: 030
     Dates: start: 2015
  5. CANDESARTAN. [Concomitant]
     Active Substance: CANDESARTAN
     Indication: HYPERTENSION
     Dosage: 2 MG, QD
     Route: 065
     Dates: start: 20170923
  6. INDAPAMIDE. [Concomitant]
     Active Substance: INDAPAMIDE
     Indication: PRODUCT USED FOR UNKNOWN INDICATION
     Dosage: UNK
     Route: 065

REACTIONS (11)
  - Pneumonia [Unknown]
  - Urinary tract infection [Recovered/Resolved]
  - Feeling cold [Unknown]
  - Hypoglycaemia [Unknown]
  - Joint swelling [Unknown]
  - Dyspnoea [Unknown]
  - Feeling abnormal [Unknown]
  - Malaise [Unknown]
  - Muscle spasms [Unknown]
  - Renal impairment [Unknown]
  - Haemorrhoids [Unknown]
